FAERS Safety Report 6199666-8 (Version None)
Quarter: 2009Q2

REPORT INFORMATION
  Report Type: 
  Country: None (occurrence: None)
  Receive Date: 20090522
  Receipt Date: 20090514
  Transmission Date: 20091009
  Serious: Yes (Other)
  Sender: FDA-Public Use
  Company Number: US-TEVA-194334USA

PATIENT
  Sex: Female

DRUGS (1)
  1. CLARAVIS CAPSULE, ISOTRETINOIN, 20MG, 30MG, 40MG [Suspect]
     Dates: start: 20090102, end: 20090506

REACTIONS (1)
  - UNINTENDED PREGNANCY [None]
